FAERS Safety Report 19060855 (Version 1)
Quarter: 2021Q1

REPORT INFORMATION
  Report Type: Spontaneous
  Country: GB (occurrence: GB)
  Receive Date: 20210325
  Receipt Date: 20210325
  Transmission Date: 20210420
  Serious: Yes (Death)
  Sender: FDA-Public Use
  Company Number: GB-MYLANLABS-2021M1017661

PATIENT
  Age: 78 Year
  Sex: Female

DRUGS (16)
  1. FOSTAIR [Concomitant]
     Active Substance: BECLOMETHASONE\FORMOTEROL
  2. FRUSEMIDE                          /00032601/ [Concomitant]
     Active Substance: FUROSEMIDE
     Dosage: 20 MILLIGRAM
  3. ADCAL D3 [Concomitant]
     Active Substance: CALCIUM CARBONATE\CHOLECALCIFEROL
  4. PREDNISOLONE. [Concomitant]
     Active Substance: PREDNISOLONE
     Dosage: UNK
  5. OMEPRAZOLE. [Suspect]
     Active Substance: OMEPRAZOLE
     Indication: DYSPEPSIA
     Dosage: 20MG
     Route: 048
     Dates: start: 201910, end: 20210313
  6. ASPIRIN                            /00002701/ [Concomitant]
     Active Substance: ASPIRIN
     Dosage: 75 MILLIGRAM
  7. HYDROXOCOBALAMINUM [Concomitant]
     Dosage: UNK
  8. DOMPERIDONE MALEATE [Suspect]
     Active Substance: DOMPERIDONE MALEATE
     Indication: GASTROOESOPHAGEAL REFLUX DISEASE
     Dosage: 10MG TDS
     Route: 048
     Dates: start: 202009, end: 20210313
  9. ATORVASTATIN [Concomitant]
     Active Substance: ATORVASTATIN
  10. SALBUTAMOL [Concomitant]
     Active Substance: ALBUTEROL
  11. VENTOLIN [Concomitant]
     Active Substance: ALBUTEROL SULFATE
     Dosage: UNK
  12. CARBOCYSTEINE [Concomitant]
     Active Substance: CARBOCYSTEINE
  13. RAMIPRIL. [Concomitant]
     Active Substance: RAMIPRIL
     Dosage: 7.5 MILLIGRAM
  14. CALCIUM AND VITAMIN D [Concomitant]
     Active Substance: CALCIUM\VITAMIN D
     Dosage: UNK
  15. DOMPERIDONE [Concomitant]
     Active Substance: DOMPERIDONE
     Dosage: 10 MILLIGRAM
  16. VITAMIN B12 [Concomitant]
     Active Substance: CYANOCOBALAMIN

REACTIONS (2)
  - Hypomagnesaemia [Fatal]
  - Ventricular fibrillation [Fatal]

NARRATIVE: CASE EVENT DATE: 20200908
